FAERS Safety Report 21572860 (Version 2)
Quarter: 2022Q4

REPORT INFORMATION
  Report Type: Spontaneous
  Country: US (occurrence: US)
  Receive Date: 20221109
  Receipt Date: 20221209
  Transmission Date: 20230113
  Serious: Yes (Hospitalization, Other)
  Sender: FDA-Public Use
  Company Number: US-PFIZER INC-PV202200099415

PATIENT
  Age: 62 Year
  Sex: Female
  Weight: 62.132 kg

DRUGS (4)
  1. BRAFTOVI [Suspect]
     Active Substance: ENCORAFENIB
     Indication: BRAF gene mutation
     Dosage: 3 DF, 1X/DAY
     Dates: start: 202008
  2. BRAFTOVI [Suspect]
     Active Substance: ENCORAFENIB
     Dosage: UNK
     Dates: start: 2022
  3. ALLER ZYR [Concomitant]
     Dosage: 10 MG, ONE HOUR BEFORE
  4. CETUXIMAB [Concomitant]
     Active Substance: CETUXIMAB
     Dosage: 404 MG, WEEKLY (INFUSED ONCE A WEEK)

REACTIONS (5)
  - Psychiatric symptom [Unknown]
  - Skin cancer [Unknown]
  - Acne [Unknown]
  - Ephelides [Unknown]
  - Skin discolouration [Unknown]

NARRATIVE: CASE EVENT DATE: 20220801
